FAERS Safety Report 8953556 (Version 1)
Quarter: 2012Q4

REPORT INFORMATION
  Report Type: 
  Country: US (occurrence: US)
  Receive Date: 20121206
  Receipt Date: 20121206
  Transmission Date: 20130627
  Serious: No
  Sender: FDA-Public Use
  Company Number: US-PFIZER INC-2012305306

PATIENT
  Age: 54 Year
  Sex: Male
  Weight: 105 kg

DRUGS (6)
  1. LYRICA [Suspect]
     Indication: PAIN
     Dosage: 150 mg, 4x/day
     Route: 048
     Dates: start: 2009
  2. LYRICA [Suspect]
     Dosage: 225 mg, 2x/day
     Route: 048
     Dates: end: 201207
  3. LYRICA [Suspect]
     Dosage: 225 mg, 2x/day
     Route: 048
     Dates: start: 2012
  4. ESOMEPRAZOLE MAGNESIUM [Concomitant]
     Indication: GASTROESOPHAGEAL REFLUX
     Dosage: UNK, daily in morning
  5. RANITIDINE HYDROCHLORIDE [Concomitant]
     Indication: GASTROESOPHAGEAL REFLUX
     Dosage: UNK, daily in night
  6. POLYETHYLENE GLYCOL 3350 [Concomitant]
     Indication: LAXATIVE SUPPORTIVE CARE
     Dosage: UNK, daily

REACTIONS (3)
  - Blood cholesterol increased [Unknown]
  - Back pain [Recovered/Resolved]
  - Drug withdrawal syndrome [Recovered/Resolved]
